FAERS Safety Report 19034397 (Version 1)
Quarter: 2021Q1

REPORT INFORMATION
  Report Type: Spontaneous
  Country: IR (occurrence: IR)
  Receive Date: 20210319
  Receipt Date: 20210319
  Transmission Date: 20210420
  Serious: Yes (Other)
  Sender: FDA-Public Use
  Company Number: IR-FRESENIUS KABI-FK202102745

PATIENT
  Age: 44 Year
  Sex: Female

DRUGS (1)
  1. DEXAMETHASONE INJECTION (MANUFACTURER UNKNOWN) [Suspect]
     Active Substance: DEXAMETHASONE
     Indication: PNEUMONIA INFLUENZAL
     Route: 042

REACTIONS (2)
  - Mucormycosis [Recovered/Resolved]
  - Hyperglycaemia [Recovered/Resolved]
